FAERS Safety Report 18392452 (Version 3)
Quarter: 2020Q4

REPORT INFORMATION
  Report Type: Report from Study
  Country: BR (occurrence: BR)
  Receive Date: 20201016
  Receipt Date: 20201221
  Transmission Date: 20210114
  Serious: Yes (Hospitalization, Other)
  Sender: FDA-Public Use
  Company Number: BR-BIOGEN-2020BI00935150

PATIENT
  Age: 25 Year
  Sex: Female

DRUGS (1)
  1. TYSABRI [Suspect]
     Active Substance: NATALIZUMAB
     Indication: MULTIPLE SCLEROSIS
     Dosage: INFUSED FOR OVER 1 HOUR
     Route: 042
     Dates: start: 202008

REACTIONS (4)
  - Dizziness [Unknown]
  - Multiple sclerosis relapse [Recovered/Resolved]
  - Tuberculin test positive [Unknown]
  - Headache [Unknown]

NARRATIVE: CASE EVENT DATE: 202010
